FAERS Safety Report 9204322 (Version 1)
Quarter: 2013Q1

REPORT INFORMATION
  Report Type: Spontaneous
  Country: US (occurrence: None)
  Receive Date: 20120709
  Receipt Date: 20120709
  Transmission Date: 20140127
  Serious: No
  Sender: FDA-Public Use
  Company Number: 2012HGS-003399

PATIENT
  Age: 32 Year
  Sex: Male
  Weight: 82.56 kg

DRUGS (8)
  1. BENLYSTA [Suspect]
     Dosage: 1 IN 28 D
     Route: 041
     Dates: start: 20120314
  2. ATENOLOL (ATENOLOL) (ATENOLOL) [Concomitant]
  3. VITAMIN B 12 (CYANOCOBALAMIN) (CYANOCOBALAMIN) [Concomitant]
  4. VITAMIN D3 (COLECALCIFEROL) (COLECALCIFEROL) [Concomitant]
  5. BABY ASPIRIN (ACETYLSALICYLIC ACID) (ACETYLSALICYLIC ACID) [Concomitant]
  6. HYDROXYCHLOROQUINE (HYDROXYCHLOROQUINE SULFATE) (HYDROXYCHLOROQUINE SULFATE) [Concomitant]
  7. LEVETIRACETAM (LEVETIRACETAM) (LEVETIRACETAM) [Concomitant]
  8. IBUPROFEN (IBUPROFEN) (IBUPROFEN) [Concomitant]

REACTIONS (1)
  - Dry mouth [None]
